FAERS Safety Report 9011757 (Version 1)
Quarter: 2012Q4

REPORT INFORMATION
  Report Type: Spontaneous
  Country: US (occurrence: None)
  Receive Date: 20121228
  Receipt Date: 20121228
  Transmission Date: 20130627
  Serious: Yes (Other)
  Sender: FDA-Public Use
  Company Number: 2012-8370

PATIENT
  Age: 9 Year
  Sex: Male

DRUGS (2)
  1. INCRELEX [Suspect]
     Dates: start: 20121124
  2. SAIZEN [Suspect]

REACTIONS (1)
  - Amblyopia [None]
